FAERS Safety Report 24774577 (Version 1)
Quarter: 2024Q4

REPORT INFORMATION
  Report Type: Spontaneous
  Country: US (occurrence: US)
  Receive Date: 20241226
  Receipt Date: 20241226
  Transmission Date: 20250114
  Serious: No
  Sender: FDC LIMITED
  Company Number: US-FDC-2024USSPO00863

PATIENT

DRUGS (3)
  1. TIMOLOL MALEATE [Suspect]
     Active Substance: TIMOLOL MALEATE
     Indication: Product used for unknown indication
     Route: 065
  2. TIMOLOL MALEATE [Suspect]
     Active Substance: TIMOLOL MALEATE
  3. TIMOLOL MALEATE [Suspect]
     Active Substance: TIMOLOL MALEATE

REACTIONS (6)
  - Foreign body sensation in eyes [Unknown]
  - Ocular hyperaemia [Unknown]
  - Visual impairment [Unknown]
  - Eye irritation [Unknown]
  - Eye pruritus [Unknown]
  - Recalled product administered [Unknown]

NARRATIVE: CASE EVENT DATE: 20230101
